APPROVED DRUG PRODUCT: CLOBAZAM
Active Ingredient: CLOBAZAM
Strength: 10MG
Dosage Form/Route: TABLET;ORAL
Application: A209853 | Product #001
Applicant: APOTEX INC
Approved: Jun 9, 2020 | RLD: No | RS: No | Type: DISCN